FAERS Safety Report 7449699-6 (Version None)
Quarter: 2011Q2

REPORT INFORMATION
  Report Type: 
  Country: None (occurrence: None)
  Receive Date: 20110421
  Receipt Date: 20110405
  Transmission Date: 20111010
  Serious: Yes (Hospitalization)
  Sender: FDA-Public Use
  Company Number: DSA_43635_2010

PATIENT
  Age: 61 Year
  Sex: Male

DRUGS (13)
  1. CLONAZEPAM [Concomitant]
  2. PANTOPRAZOLE [Concomitant]
  3. ENALAPRIL MALEATE [Suspect]
     Indication: PRODUCT USED FOR UNKNOWN INDICATION
     Dosage: 40 MG ORAL (UNKNOWN DOSING - DOSE REDUCED ORAL)
     Route: 048
  4. CARBAMAZEPINE [Concomitant]
  5. ISOSORBIDE MONONITRATE [Concomitant]
  6. AMITRIPTYLINE HCL [Concomitant]
  7. ATORVASTATIN CALCIUM [Concomitant]
  8. INSULIN [Concomitant]
  9. ATENOLOL [Concomitant]
  10. FUROSEMIDE [Concomitant]
  11. SPIRONOLACTONE [Concomitant]
  12. ASPIRIN [Concomitant]
  13. METOCLOPRAMIDE [Concomitant]

REACTIONS (3)
  - DIARRHOEA [None]
  - DUODENAL ULCER HAEMORRHAGE [None]
  - RENAL FAILURE ACUTE [None]
